FAERS Safety Report 14288360 (Version 5)
Quarter: 2018Q1

REPORT INFORMATION
  Report Type: Report from Study
  Country: US (occurrence: US)
  Receive Date: 20171214
  Receipt Date: 20180216
  Transmission Date: 20180509
  Serious: Yes (Other)
  Sender: FDA-Public Use
  Company Number: US-PFIZER INC-2017510651

PATIENT
  Age: 74 Year
  Sex: Female

DRUGS (3)
  1. IBRANCE [Suspect]
     Active Substance: PALBOCICLIB
     Indication: BREAST CANCER STAGE IV
     Dosage: 100 MG, UNK
     Dates: start: 20171116
  2. XGEVA [Concomitant]
     Active Substance: DENOSUMAB
     Indication: METASTASES TO BONE
     Dosage: UNK
     Dates: start: 20171211, end: 20171224
  3. IBRANCE [Suspect]
     Active Substance: PALBOCICLIB
     Dosage: 125 MG, CYCLIC (ONCE DAILY FOR 21 DAYS IN A ROW FOLLOWED BY 7 DAYS OFF)
     Route: 048
     Dates: start: 20171119, end: 20171228

REACTIONS (13)
  - Headache [Unknown]
  - Asthenia [Unknown]
  - Rash [Unknown]
  - Chest pain [Unknown]
  - Nausea [Unknown]
  - Back pain [Unknown]
  - Condition aggravated [Not Recovered/Not Resolved]
  - Liver function test abnormal [Unknown]
  - Neuropathy peripheral [Not Recovered/Not Resolved]
  - Abdominal pain upper [Unknown]
  - Arthralgia [Unknown]
  - Fatigue [Unknown]
  - Transaminases increased [Recovering/Resolving]

NARRATIVE: CASE EVENT DATE: 2017
